FAERS Safety Report 9196444 (Version 2)
Quarter: 2013Q2

REPORT INFORMATION
  Report Type: Spontaneous
  Country: US (occurrence: US)
  Receive Date: 20130328
  Receipt Date: 20130510
  Transmission Date: 20140414
  Serious: No
  Sender: FDA-Public Use
  Company Number: US-PFIZER INC-2013095109

PATIENT
  Age: 65 Year
  Sex: Female

DRUGS (26)
  1. LEVOXYL [Suspect]
     Indication: HYPOTHYROIDISM
     Dosage: 150 UG (3 X 50MG TABLETS), 1X/DAY
  2. LEVOXYL [Suspect]
     Dosage: 125 UG (2.5 TABLETS OF 50 MCG), 1X/DAY
     Route: 048
     Dates: start: 20120921
  3. ALLEGRA [Concomitant]
     Indication: HYPERSENSITIVITY
     Dosage: 60 MG, 2X/DAY PRN
     Route: 048
  4. ALLEGRA [Concomitant]
     Dosage: 180 MG, 1X/DAY PRN
     Route: 048
  5. ALLEGRA [Concomitant]
     Dosage: 60 MG, 1X/DAY
     Route: 048
  6. ASPIRIN [Concomitant]
     Dosage: 81 MG, 1X/DAY
     Route: 048
  7. FLAX SEED OIL [Concomitant]
     Dosage: 1 DF, 1X/DAY
     Route: 048
  8. HYDROCHLOROTHIAZIDE [Concomitant]
     Dosage: 12.5 MG (1 TABLET), 1X/DAY
     Route: 048
  9. HYDROCHLOROTHIAZIDE [Concomitant]
     Dosage: 12.5 MG (0.5 TABLET OF 25 MG), 1X/DAY
     Route: 048
  10. HYDROCHLOROTHIAZIDE [Concomitant]
     Dosage: 25 MG, 1X/DAY
     Route: 048
  11. LEXAPRO [Concomitant]
     Dosage: 10 MG, 2X/DAY
     Route: 048
  12. MAGNESIUM OXIDE [Concomitant]
     Dosage: 400 MG, 1X/DAY
     Route: 048
  13. MODAFINIL [Concomitant]
     Dosage: 200 MG (1 TABLET), 2X/DAY
     Route: 048
  14. NASONEX [Concomitant]
     Dosage: 50 UG (1 SPRAY OF 50 MCG), 1X/DAY
     Route: 045
  15. NASONEX [Concomitant]
     Dosage: 100 UG (2 NASAL SPRAYS OF 50 MCG), 2X/DAY AS DIRECTED
     Route: 045
  16. OMEGA - 3 FATTY ACID [Concomitant]
     Dosage: 4 G, 1X/DAY
     Route: 048
  17. OMEPRAZOLE [Concomitant]
     Dosage: 20 MG, 1X/DAY
  18. OMEPRAZOLE [Concomitant]
     Dosage: 20 MG (1 CAPSULE), 2X/DAY
     Route: 048
  19. SEROQUEL [Concomitant]
     Dosage: 25 MG, 2X/DAY
  20. SEROQUEL [Concomitant]
     Dosage: 6.25 MG (0.25 TABLET OF 25 MG), 1X/DAY, QHS
     Route: 048
  21. SEROQUEL [Concomitant]
     Dosage: 12.5 MG, 2X/DAY (25MG TABLET TAKE 0.5)
     Route: 048
  22. SEROQUEL [Concomitant]
     Dosage: 25 MG, (1 TABLET), AT BEDTIME (QSH)
     Route: 048
  23. VITAMIN B COMPLEX [Concomitant]
     Dosage: 1 DF, 1X/DAY
     Route: 048
  24. VITAMIN D3 [Concomitant]
     Dosage: 2000 IU (2 CAPSULES OF 1000 UNIT), 1X/DAY
     Route: 048
  25. SYNTHROID [Concomitant]
     Dosage: 125 UG (2.5 TABLET OF 50 MCG), 1X/DAY
     Route: 048
  26. MAXZIDE [Concomitant]
     Dosage: 0.5 DF (TRIAMTERENE 37.5 MG/ HYDROCHLOROTHIAZIDE 25 MG), 1X/DAY
     Route: 048

REACTIONS (3)
  - Drug hypersensitivity [Recovered/Resolved]
  - Drug intolerance [Recovered/Resolved]
  - Blood thyroid stimulating hormone decreased [Recovered/Resolved]
